FAERS Safety Report 7680483-4 (Version None)
Quarter: 2011Q3

REPORT INFORMATION
  Report Type: 
  Country: None (occurrence: None)
  Receive Date: 20110812
  Receipt Date: 20110801
  Transmission Date: 20111222
  Serious: Yes (Hospitalization, Other)
  Sender: FDA-Public Use
  Company Number: US-JNJFOC-20080905265

PATIENT
  Sex: Female

DRUGS (6)
  1. MULTIPLE VITAMINS [Concomitant]
  2. MERCAPTOPURINE [Concomitant]
  3. REMICADE [Suspect]
     Indication: COLITIS
     Route: 042
     Dates: start: 20070403
  4. REMICADE [Suspect]
     Dosage: TOTAL 13 DOSES
     Route: 042
     Dates: start: 20080807, end: 20080807
  5. S-ASA [Concomitant]
  6. FOLIC ACID [Concomitant]

REACTIONS (3)
  - HAEMORRHAGE [None]
  - DIARRHOEA [None]
  - CYTOMEGALOVIRUS VIRAEMIA [None]
